FAERS Safety Report 14699981 (Version 1)
Quarter: 2018Q1

REPORT INFORMATION
  Report Type: Spontaneous
  Country: US (occurrence: US)
  Receive Date: 20180329
  Receipt Date: 20180329
  Transmission Date: 20180509
  Serious: Yes (Life-Threatening, Hospitalization, Other)
  Sender: FDA-Public Use
  Company Number: None

PATIENT
  Age: 21 Year
  Sex: Female
  Weight: 51.8 kg

DRUGS (1)
  1. KYMRIAH [Suspect]
     Active Substance: TISAGENLECLEUCEL

REACTIONS (7)
  - Unevaluable event [None]
  - Muscular weakness [None]
  - Rash [None]
  - Abdominal distension [None]
  - Neurotoxicity [None]
  - Infection [None]
  - Pyrexia [None]
